FAERS Safety Report 6856545-8 (Version None)
Quarter: 2010Q3

REPORT INFORMATION
  Report Type: 
  Country: None (occurrence: None)
  Receive Date: 20100716
  Receipt Date: 20100716
  Transmission Date: 20110219
  Serious: Yes (Life-Threatening, Hospitalization, Disabling, Other)
  Sender: FDA-Public Use
  Company Number: None

PATIENT
  Age: 25 Year
  Sex: Female
  Weight: 52.1637 kg

DRUGS (1)
  1. TYLENOL SINUS CONGESTION + PAIN SEVERE MCNEIL CONSUMER HEALTHCARE [Suspect]
     Indication: HEADACHE
     Dates: start: 20100714, end: 20100715

REACTIONS (12)
  - DYSPNOEA [None]
  - GASTRIC DISORDER [None]
  - HYPERSENSITIVITY [None]
  - HYPOAESTHESIA [None]
  - LOCAL SWELLING [None]
  - LOSS OF CONSCIOUSNESS [None]
  - OEDEMA PERIPHERAL [None]
  - PHARYNGEAL OEDEMA [None]
  - PHYSICAL PRODUCT LABEL ISSUE [None]
  - REACTION TO DRUG EXCIPIENTS [None]
  - SWELLING FACE [None]
  - VISUAL IMPAIRMENT [None]
